FAERS Safety Report 8283245-2 (Version None)
Quarter: 2012Q2

REPORT INFORMATION
  Report Type: 
  Country: None (occurrence: None)
  Receive Date: 20120413
  Receipt Date: 20120405
  Transmission Date: 20120825
  Serious: Yes (Hospitalization, Other)
  Sender: FDA-Public Use
  Company Number: US-MERCK-1201USA02845

PATIENT
  Age: 49 Year
  Sex: Female

DRUGS (2)
  1. CALCIUM (UNSPECIFIED) [Concomitant]
     Indication: OSTEOPOROSIS
     Route: 065
     Dates: start: 20030101
  2. FOSAMAX [Suspect]
     Indication: OSTEOPOROSIS
     Route: 048
     Dates: start: 20030301, end: 20100301

REACTIONS (11)
  - HAEMORRHAGE [None]
  - LOW TURNOVER OSTEOPATHY [None]
  - PAIN IN EXTREMITY [None]
  - OEDEMA PERIPHERAL [None]
  - FEMUR FRACTURE [None]
  - GAIT DISTURBANCE [None]
  - LIGAMENT SPRAIN [None]
  - HAND FRACTURE [None]
  - ADVERSE EVENT [None]
  - CERUMEN IMPACTION [None]
  - CHEST PAIN [None]
